FAERS Safety Report 4522983-1 (Version None)
Quarter: 2004Q4

REPORT INFORMATION
  Report Type: 
  Country: None (occurrence: None)
  Receive Date: 20041208
  Receipt Date: 20041125
  Transmission Date: 20050328
  Serious: Yes (Hospitalization)
  Sender: FDA-Public Use
  Company Number: 200410611BFR

PATIENT
  Age: 68 Year
  Sex: Male

DRUGS (4)
  1. IZILOX (MOXIFLOXACIN HYDROCHLORIDE) [Suspect]
     Indication: SINUSITIS
     Dosage: 400 MG, TOTAL DAILY, ORAL
     Route: 048
     Dates: end: 20041101
  2. AMAREL [Concomitant]
  3. METFORMIN HCL [Concomitant]
  4. ALLOPURINOL [Concomitant]

REACTIONS (5)
  - FALL [None]
  - HEAD INJURY [None]
  - SUPRAVENTRICULAR EXTRASYSTOLES [None]
  - SYNCOPE [None]
  - VERTIGO [None]
